FAERS Safety Report 5744154-3 (Version None)
Quarter: 2008Q2

REPORT INFORMATION
  Report Type: 
  Country: None (occurrence: None)
  Receive Date: 20080520
  Receipt Date: 20080515
  Transmission Date: 20081010
  Serious: Yes (Life-Threatening, Hospitalization)
  Sender: FDA-Public Use
  Company Number: FR-JNJFOC-20080502913

PATIENT
  Sex: Male

DRUGS (16)
  1. DURAGESIC-100 [Suspect]
     Route: 062
  2. DURAGESIC-100 [Suspect]
     Route: 062
  3. DURAGESIC-100 [Suspect]
     Indication: DRUG USE FOR UNKNOWN INDICATION
     Route: 062
  4. ACETAMINOPHEN W/ CODEINE [Suspect]
     Indication: PAIN
     Dosage: MAXIMUM DAILY DOSE OF 6 UNITS
     Route: 048
  5. ATARAX [Suspect]
     Indication: DRUG USE FOR UNKNOWN INDICATION
     Route: 048
  6. SPIRIVA [Concomitant]
     Route: 055
  7. FUROSEMIDE [Concomitant]
     Route: 048
  8. COAPROVEL [Concomitant]
     Dosage: IRBESARTAN/ HYDROCHLOROTHIAZIDE (300MG/12.5MG)
     Route: 048
  9. HEMIGOXINE NATIVELLE [Concomitant]
     Route: 048
  10. FOZITEC [Concomitant]
     Route: 048
  11. ALLOPURINOL [Concomitant]
     Route: 048
  12. ASPIRIN [Concomitant]
     Route: 048
  13. MOPRAL [Concomitant]
     Route: 048
  14. TIMOFEROL [Concomitant]
     Route: 048
  15. ZANIDIP [Concomitant]
     Route: 048
  16. OXYGEN THERAPY [Concomitant]
     Indication: BRONCHOPNEUMOPATHY

REACTIONS (5)
  - CONFUSIONAL STATE [None]
  - ENCEPHALOPATHY [None]
  - MIOSIS [None]
  - MYOCLONUS [None]
  - URINARY RETENTION [None]
